FAERS Safety Report 12354673 (Version 1)
Quarter: 2016Q2

REPORT INFORMATION
  Report Type: Spontaneous
  Country: US (occurrence: US)
  Receive Date: 20160511
  Receipt Date: 20160511
  Transmission Date: 20160815
  Serious: No
  Sender: FDA-Public Use
  Company Number: US-GLAXOSMITHKLINE-US2016GSK064330

PATIENT
  Sex: Female

DRUGS (5)
  1. HABITROL [Suspect]
     Active Substance: NICOTINE
     Indication: SMOKING CESSATION THERAPY
     Dosage: 21 MG, QD
     Route: 061
     Dates: start: 20160414
  2. NICODERM CQ [Suspect]
     Active Substance: NICOTINE
     Indication: SMOKING CESSATION THERAPY
     Dosage: UNK
  3. NICODERM CQ [Suspect]
     Active Substance: NICOTINE
     Indication: SMOKING CESSATION THERAPY
     Dosage: UNK UNK, QD
     Route: 061
     Dates: start: 2015
  4. NICODERM CQ [Suspect]
     Active Substance: NICOTINE
     Indication: SMOKING CESSATION THERAPY
     Dosage: 21 MG, QD
     Route: 061
  5. NICODERM CQ [Suspect]
     Active Substance: NICOTINE
     Indication: SMOKING CESSATION THERAPY
     Dosage: UNK

REACTIONS (3)
  - Drug ineffective [Unknown]
  - Product quality issue [Unknown]
  - Incorrect drug administration duration [Unknown]
